FAERS Safety Report 13934387 (Version 1)
Quarter: 2017Q3

REPORT INFORMATION
  Report Type: Report from Study
  Country: US (occurrence: US)
  Receive Date: 20170905
  Receipt Date: 20170905
  Transmission Date: 20171127
  Serious: No
  Sender: FDA-Public Use
  Company Number: PHEH2017US027256

PATIENT
  Sex: Male

DRUGS (2)
  1. PROMACTA [Suspect]
     Active Substance: ELTROMBOPAG OLAMINE
     Indication: PRODUCT USED FOR UNKNOWN INDICATION
     Route: 065
  2. PROMACTA [Suspect]
     Active Substance: ELTROMBOPAG OLAMINE
     Dosage: REDUCED DOSE
     Route: 065

REACTIONS (5)
  - Red blood cell abnormality [Unknown]
  - Hypoacusis [Unknown]
  - Platelet disorder [Unknown]
  - White blood cell disorder [Unknown]
  - Bone pain [Unknown]
